FAERS Safety Report 8623163-0 (Version None)
Quarter: 2012Q3

REPORT INFORMATION
  Report Type: 
  Country: None (occurrence: None)
  Receive Date: 20120827
  Receipt Date: 20120821
  Transmission Date: 20120928
  Serious: Yes (Other)
  Sender: FDA-Public Use
  Company Number: GR-AMGEN-GRCSP2012053138

PATIENT
  Sex: Female

DRUGS (2)
  1. CINACALCET HYDROCHLORIDE [Suspect]
     Dosage: 30 MG, QD
     Route: 048
     Dates: start: 20120501
  2. CINACALCET HYDROCHLORIDE [Suspect]
     Indication: HYPERPARATHYROIDISM PRIMARY
     Dosage: 60 MG, QD
     Route: 048
     Dates: end: 20120801

REACTIONS (4)
  - RECTAL HAEMORRHAGE [None]
  - FLATULENCE [None]
  - ABDOMINAL DISTENSION [None]
  - DIARRHOEA [None]
